FAERS Safety Report 7224365-0 (Version None)
Quarter: 2011Q1

REPORT INFORMATION
  Report Type: 
  Country: None (occurrence: None)
  Receive Date: 20110106
  Receipt Date: 20110106
  Transmission Date: 20110831
  Serious: No
  Sender: FDA-Public Use
  Company Number: None

PATIENT
  Sex: Female
  Weight: 80.7403 kg

DRUGS (2)
  1. DARVOCET [Suspect]
     Indication: SURGERY
     Dosage: 1 4 HRS.
     Dates: start: 20050101, end: 20100101
  2. DARVOCET [Suspect]
     Indication: BACK PAIN
     Dosage: 1 4 HRS.
     Dates: start: 20050101, end: 20100101

REACTIONS (1)
  - BRADYCARDIA [None]
